FAERS Safety Report 5372630-4 (Version None)
Quarter: 2007Q2

REPORT INFORMATION
  Report Type: 
  Country: None (occurrence: None)
  Receive Date: 20070615
  Receipt Date: 20060810
  Transmission Date: 20071010
  Serious: Yes (Other)
  Sender: FDA-Public Use
  Company Number: 200610832US

PATIENT
  Age: 61 Year
  Sex: Female
  Weight: 97 kg

DRUGS (9)
  1. LANTUS [Suspect]
     Indication: DIABETES MELLITUS NON-INSULIN-DEPENDENT
     Dosage: 90 U QPM
     Dates: start: 20060110
  2. OPTICLIK [Suspect]
     Indication: DIABETES MELLITUS NON-INSULIN-DEPENDENT
     Dosage: QPM
     Dates: start: 20060110
  3. CLOPIDOGREL (PLAVIX /01220701/) [Concomitant]
  4. DIABETA [Concomitant]
  5. METOPROLOL SUCCINATE [Concomitant]
  6. FUROSEMIDE [Concomitant]
  7. SYNTHROID [Concomitant]
  8. ASPIRIN [Concomitant]
  9. IMDUR [Concomitant]

REACTIONS (2)
  - HYPERGLYCAEMIA [None]
  - NIGHT SWEATS [None]
